FAERS Safety Report 22388531 (Version 1)
Quarter: 2023Q2

REPORT INFORMATION
  Report Type: Spontaneous
  Country: CA (occurrence: CA)
  Receive Date: 20230531
  Receipt Date: 20230531
  Transmission Date: 20230721
  Serious: Yes (Hospitalization, Other)
  Sender: FDA-Public Use
  Company Number: None

PATIENT
  Sex: Male
  Weight: 85 kg

DRUGS (10)
  1. QUETIAPINE FUMARATE [Interacting]
     Active Substance: QUETIAPINE FUMARATE
     Indication: Psychotic disorder
     Dosage: 700 MG, ONCE PER DAY
  2. QUETIAPINE FUMARATE [Interacting]
     Active Substance: QUETIAPINE FUMARATE
     Dosage: 200 MG, AS NECESSARY
  3. VALPROIC ACID [Interacting]
     Active Substance: VALPROIC ACID
     Indication: Seizure
     Dosage: 1500 MG, ONCE PER DAY
     Route: 048
  4. CARBAMAZEPINE [Interacting]
     Active Substance: CARBAMAZEPINE
     Indication: Seizure
     Dosage: 200 MG, ONCE PER DAY
  5. DIAZEPAM [Interacting]
     Active Substance: DIAZEPAM
     Indication: Seizure
     Dosage: 30 MG  ONCE PER DAY (UPTO 30MG/DAY)
     Route: 048
  6. DIAZEPAM [Interacting]
     Active Substance: DIAZEPAM
     Dosage: UPTO 30MG/DAY
  7. PHENYTOIN [Interacting]
     Active Substance: PHENYTOIN
     Indication: Seizure
     Dosage: 600 MG, ONCE PER DAY
  8. TEMAZEPAM [Concomitant]
     Active Substance: TEMAZEPAM
     Indication: Seizure
     Dosage: UNK, AS NECESSARY
  9. PROPRANOLOL [Concomitant]
     Active Substance: PROPRANOLOL HYDROCHLORIDE
     Indication: Hypertension
     Dosage: 80 MG, ONCE PER DAY
  10. GEMFIBROZIL [Concomitant]
     Active Substance: GEMFIBROZIL
     Indication: Product used for unknown indication
     Dosage: 12 MG, ONCE PER DAY

REACTIONS (2)
  - Drug level below therapeutic [Recovering/Resolving]
  - Drug interaction [Recovering/Resolving]
